FAERS Safety Report 4596971-3 (Version None)
Quarter: 2005Q1

REPORT INFORMATION
  Report Type: 
  Country: None (occurrence: None)
  Receive Date: 20050302
  Receipt Date: 20050216
  Transmission Date: 20050727
  Serious: Yes (Hospitalization)
  Sender: FDA-Public Use
  Company Number: FR-ABBOTT-05P-056-0290925-00

PATIENT
  Age: 65 Year
  Sex: Female
  Weight: 90 kg

DRUGS (13)
  1. LIPANTHYL TABLETS [Suspect]
     Indication: HYPERLIPIDAEMIA
     Route: 048
     Dates: start: 20040823, end: 20040828
  2. IXPRIM [Suspect]
     Indication: ARTHROPATHY
     Route: 048
     Dates: start: 20040823, end: 20040828
  3. LANSOPRAZOLE [Suspect]
     Indication: DRUG USE FOR UNKNOWN INDICATION
     Route: 048
     Dates: end: 20040831
  4. CELECOXIB [Suspect]
     Indication: ARTHROPATHY
     Dates: end: 20040831
  5. CYAMEMAZINE [Suspect]
     Indication: DRUG USE FOR UNKNOWN INDICATION
     Route: 048
     Dates: end: 20040831
  6. PRAVASTATIN SODIUM [Suspect]
     Indication: HYPERLIPIDAEMIA
     Route: 048
     Dates: end: 20040828
  7. NITROGLYCERIN [Concomitant]
     Indication: DRUG USE FOR UNKNOWN INDICATION
     Route: 061
  8. SPIRONOLACTONE [Concomitant]
     Indication: DRUG USE FOR UNKNOWN INDICATION
     Route: 048
  9. DIGOXIN [Concomitant]
     Indication: DRUG USE FOR UNKNOWN INDICATION
     Route: 048
  10. ACARBOSE [Concomitant]
     Indication: DRUG USE FOR UNKNOWN INDICATION
     Route: 048
  11. INSULIN PORCINE [Concomitant]
     Indication: DRUG USE FOR UNKNOWN INDICATION
     Route: 058
  12. UMULINE NPH [Concomitant]
     Indication: DRUG USE FOR UNKNOWN INDICATION
     Route: 058
  13. METFORMIN EMBONATE [Concomitant]
     Indication: DRUG USE FOR UNKNOWN INDICATION
     Route: 048

REACTIONS (5)
  - PHOTOSENSITIVITY REACTION [None]
  - PURPURA [None]
  - RASH ERYTHEMATOUS [None]
  - RASH VESICULAR [None]
  - TOXIC SKIN ERUPTION [None]
